FAERS Safety Report 25802382 (Version 1)
Quarter: 2025Q3

REPORT INFORMATION
  Report Type: Spontaneous
  Country: US (occurrence: None)
  Receive Date: 20250912
  Receipt Date: 20250912
  Transmission Date: 20251021
  Serious: Yes (Hospitalization)
  Sender: FDA-CTU
  Company Number: None

PATIENT
  Age: 71 Year

DRUGS (11)
  1. REPATHA [Suspect]
     Active Substance: EVOLOCUMAB
     Indication: Hyperlipidaemia
     Dates: start: 20250626
  2. ATORVASTATIN [Concomitant]
     Active Substance: ATORVASTATIN
  3. CALCIUM+ D [Concomitant]
  4. ISOSORBIDE MONONITRATE [Concomitant]
     Active Substance: ISOSORBIDE MONONITRATE
  5. LEVOTHYROXINE [Concomitant]
     Active Substance: LEVOTHYROXINE
  6. LOSARTAN [Concomitant]
     Active Substance: LOSARTAN
  7. METOPROLOL [Concomitant]
     Active Substance: METOPROLOL
  8. OMEPRAZOLE [Concomitant]
     Active Substance: OMEPRAZOLE
  9. VITAMIN B12 [Concomitant]
     Active Substance: CYANOCOBALAMIN
  10. ZETIA [Concomitant]
     Active Substance: EZETIMIBE
  11. ASPIRIN [Concomitant]
     Active Substance: ASPIRIN

REACTIONS (2)
  - Hypersensitivity [None]
  - Post procedural complication [None]

NARRATIVE: CASE EVENT DATE: 20250706
